FAERS Safety Report 8226434-5 (Version None)
Quarter: 2012Q1

REPORT INFORMATION
  Report Type: 
  Country: None (occurrence: None)
  Receive Date: 20120321
  Receipt Date: 20120312
  Transmission Date: 20120608
  Serious: Yes (Other)
  Sender: FDA-Public Use
  Company Number: FR-ASTRAZENECA-2012SE17462

PATIENT
  Age: 2 Year
  Weight: 13 kg

DRUGS (1)
  1. ZOMIG [Suspect]
     Route: 048

REACTIONS (3)
  - HYPERTENSION [None]
  - TACHYPNOEA [None]
  - TOXICITY TO VARIOUS AGENTS [None]
